FAERS Safety Report 7166652-0 (Version None)
Quarter: 2010Q4

REPORT INFORMATION
  Report Type: 
  Country: None (occurrence: None)
  Receive Date: 20101216
  Receipt Date: 20101206
  Transmission Date: 20110411
  Serious: Yes (Other)
  Sender: FDA-Public Use
  Company Number: US-ELI_LILLY_AND_COMPANY-US201012002324

PATIENT

DRUGS (1)
  1. EFFIENT [Suspect]
     Indication: STENT PLACEMENT

REACTIONS (3)
  - ABDOMINAL PAIN [None]
  - LABORATORY TEST ABNORMAL [None]
  - PANCREATITIS [None]
